FAERS Safety Report 11720603 (Version 7)
Quarter: 2016Q3

REPORT INFORMATION
  Report Type: Spontaneous
  Country: US (occurrence: US)
  Receive Date: 20151110
  Receipt Date: 20160818
  Transmission Date: 20161109
  Serious: Yes (Other)
  Sender: FDA-Public Use
  Company Number: US-TEVA-606951USA

PATIENT
  Age: 42 Year
  Sex: Female

DRUGS (3)
  1. ZECUITY [Suspect]
     Active Substance: SUMATRIPTAN SUCCINATE
     Dosage: 6.5 MG/4 HOURS
     Route: 062
     Dates: start: 20151104, end: 20151104
  2. ZECUITY [Suspect]
     Active Substance: SUMATRIPTAN SUCCINATE
     Dosage: 4 HOURS
     Route: 062
     Dates: start: 20151108, end: 20151108
  3. ZECUITY [Suspect]
     Active Substance: SUMATRIPTAN SUCCINATE
     Dosage: 4 HOURS
     Route: 062
     Dates: start: 20151110, end: 20151110

REACTIONS (14)
  - Application site exfoliation [Recovered/Resolved]
  - Application site urticaria [Recovered/Resolved]
  - Incorrect product storage [Unknown]
  - Chemical burn of skin [Recovered/Resolved]
  - Sunburn [Recovered/Resolved]
  - Application site pain [Recovered/Resolved]
  - Drug ineffective [Unknown]
  - Application site erosion [Recovered/Resolved]
  - Drug dependence [Unknown]
  - Drug effect incomplete [Unknown]
  - Application site burn [Recovered/Resolved]
  - Device leakage [Unknown]
  - Dry skin [Recovered/Resolved]
  - Application site erythema [Recovered/Resolved]

NARRATIVE: CASE EVENT DATE: 201511
